FAERS Safety Report 6999465-0 (Version None)
Quarter: 2010Q3

REPORT INFORMATION
  Report Type: 
  Country: None (occurrence: None)
  Receive Date: 20100920
  Receipt Date: 20100412
  Transmission Date: 20110219
  Serious: Yes (Disabling)
  Sender: FDA-Public Use
  Company Number: US-ASTRAZENECA-2007UW09177

PATIENT
  Age: 16857 Day
  Sex: Male
  Weight: 98.4 kg

DRUGS (12)
  1. SEROQUEL [Suspect]
     Route: 048
  2. FLEXERIL [Concomitant]
     Route: 048
     Dates: start: 20090213
  3. PERCOCET [Concomitant]
     Indication: PAIN
     Dosage: 5-325, EVERY 6 HOURLY AS NEEDED
     Route: 048
     Dates: start: 20090213, end: 20090514
  4. HYDRODIURIL [Concomitant]
     Route: 048
     Dates: start: 20081014
  5. GLUCOPHAGE [Concomitant]
     Route: 048
     Dates: start: 20081014
  6. PROZAC [Concomitant]
     Route: 048
     Dates: start: 20081014
  7. FELDENE [Concomitant]
     Route: 048
     Dates: start: 20081014
  8. ASPIRIN [Concomitant]
     Route: 048
     Dates: start: 20060804
  9. NITROGLYCERIN [Concomitant]
     Indication: CHEST PAIN
     Dosage: 0.4 MG , 1 TABLET UNDER THE TONGUE, MAY REPEAT AFTER 5 MIN FOR THREE DOSES
     Route: 060
     Dates: start: 20060130
  10. DIABETA [Concomitant]
     Route: 048
     Dates: start: 20090213
  11. MEVACOR [Concomitant]
     Route: 048
     Dates: start: 20090213
  12. FISH OILS [Concomitant]
     Dosage: 2000-3000 MG
     Dates: start: 20090213

REACTIONS (1)
  - DIABETES MELLITUS [None]
